FAERS Safety Report 23297239 (Version 1)
Quarter: 2023Q4

REPORT INFORMATION
  Report Type: Spontaneous
  Country: CN (occurrence: CN)
  Receive Date: 20231214
  Receipt Date: 20231214
  Transmission Date: 20240110
  Serious: Yes (Hospitalization)
  Sender: FDA-Public Use
  Company Number: CN-ORGANON-O2312CHN000223

PATIENT
  Age: 60 Year
  Sex: Male
  Weight: 80 kg

DRUGS (11)
  1. DIPROSPAN [Suspect]
     Active Substance: BETAMETHASONE DIPROPIONATE\BETAMETHASONE SODIUM PHOSPHATE
     Indication: Gouty arthritis
     Dosage: 7 MILLIGRAM, QD
     Route: 030
     Dates: start: 20230307, end: 20230307
  2. DIPROSPAN [Suspect]
     Active Substance: BETAMETHASONE DIPROPIONATE\BETAMETHASONE SODIUM PHOSPHATE
     Dosage: 7 MILLIGRAM, QD
     Route: 030
     Dates: start: 20230324, end: 20230324
  3. PERINDOPRIL ERBUMINE [Concomitant]
     Active Substance: PERINDOPRIL ERBUMINE
     Indication: Hypertension
     Dosage: 4 MILLIGRAM, QD
     Route: 048
     Dates: start: 2008
  4. ASPIRIN [Concomitant]
     Active Substance: ASPIRIN
     Indication: Coronary artery disease
     Dosage: 0.1 GRAM, QD
     Route: 048
     Dates: start: 2008
  5. METOPROLOL SUCCINATE [Concomitant]
     Active Substance: METOPROLOL SUCCINATE
     Indication: Coronary artery disease
     Dosage: 95 MILLIGRAM, QD
     Route: 048
     Dates: start: 2008
  6. IVABRADINE HYDROCHLORIDE [Concomitant]
     Active Substance: IVABRADINE HYDROCHLORIDE
     Indication: Coronary artery disease
     Dosage: 5 MILLIGRAM, BID
     Route: 048
     Dates: start: 2008
  7. ATORVASTATIN CALCIUM [Concomitant]
     Active Substance: ATORVASTATIN CALCIUM
     Indication: Hyperlipidaemia
     Dosage: 20 MILLIGRAM; FREQUENCY QN
     Route: 048
     Dates: start: 2008
  8. NIFEDIPINE [Concomitant]
     Active Substance: NIFEDIPINE
     Indication: Hypertension
     Dosage: 30 MILLIGRAM, QD
     Route: 048
     Dates: start: 2008, end: 20230327
  9. NIFEDIPINE [Concomitant]
     Active Substance: NIFEDIPINE
     Dosage: 30 MILLIGRAM, QD
     Route: 048
     Dates: start: 20230328
  10. BENZBROMARONE [Concomitant]
     Active Substance: BENZBROMARONE
     Indication: Blood uric acid decreased
     Dosage: 50 MILLIGRAM, QD
     Route: 048
     Dates: start: 20221102
  11. ISOSORBIDE MONONITRATE [Concomitant]
     Active Substance: ISOSORBIDE MONONITRATE
     Indication: Coronary artery disease
     Dosage: 50 MILLIGRAM, QD
     Route: 048
     Dates: start: 20221201

REACTIONS (1)
  - Hypertension [Recovered/Resolved]

NARRATIVE: CASE EVENT DATE: 20230404
